FAERS Safety Report 14480037 (Version 1)
Quarter: 2018Q1

REPORT INFORMATION
  Report Type: Report from Study
  Country: FR (occurrence: FR)
  Receive Date: 20180202
  Receipt Date: 20180202
  Transmission Date: 20180509
  Serious: Yes (Hospitalization, Other)
  Sender: FDA-Public Use
  Company Number: FR-PFIZER INC-2018038447

PATIENT
  Age: 75 Year
  Sex: Female
  Weight: 50 kg

DRUGS (9)
  1. FLUOROURACILE PFIZER [Suspect]
     Active Substance: FLUOROURACIL
     Indication: COLORECTAL CANCER METASTATIC
     Dosage: 3624 MG, CYCLIC
     Route: 065
     Dates: start: 20160829
  2. IRINOTECAN PFIZER [Suspect]
     Active Substance: IRINOTECAN
     Dosage: 202.5 MG, UNK
     Route: 065
     Dates: start: 20160926
  3. FLUOROURACILE PFIZER [Suspect]
     Active Substance: FLUOROURACIL
     Dosage: 3552 MG, UNK
     Route: 065
     Dates: start: 20161030
  4. FLUOROURACILE PFIZER [Suspect]
     Active Substance: FLUOROURACIL
     Dosage: 3600 MG, UNK
     Route: 065
     Dates: start: 20160926
  5. IRINOTECAN PFIZER [Suspect]
     Active Substance: IRINOTECAN
     Dosage: 271.8 MG, CYCLIC
     Route: 065
     Dates: start: 20160829
  6. AVASTIN [Suspect]
     Active Substance: BEVACIZUMAB
     Indication: COLORECTAL CANCER METASTATIC
     Dosage: 240 MG, UNK
     Route: 065
     Dates: start: 20161030
  7. IRINOTECAN PFIZER [Suspect]
     Active Substance: IRINOTECAN
     Indication: COLORECTAL CANCER METASTATIC
     Dosage: 199.8 MG, UNK
     Route: 065
     Dates: start: 20161030
  8. AVASTIN [Suspect]
     Active Substance: BEVACIZUMAB
     Dosage: 250 MG, UNK
     Route: 065
     Dates: start: 20160926
  9. AVASTIN [Suspect]
     Active Substance: BEVACIZUMAB
     Dosage: 255 MG, CYCLIC
     Route: 065
     Dates: start: 20160829

REACTIONS (8)
  - Flank pain [Recovered/Resolved]
  - Nausea [Recovered/Resolved]
  - Abdominal tenderness [Recovered/Resolved]
  - Diarrhoea [Recovered/Resolved]
  - Vomiting [Recovered/Resolved]
  - Muscle spasms [Unknown]
  - Abdominal pain [Unknown]
  - Fatigue [Recovered/Resolved]

NARRATIVE: CASE EVENT DATE: 20160902
